FAERS Safety Report 9553663 (Version 1)
Quarter: 2013Q3

REPORT INFORMATION
  Report Type: Spontaneous
  Country: US (occurrence: None)
  Receive Date: 20130815
  Receipt Date: 20130815
  Transmission Date: 20140515
  Serious: Yes (Other)
  Sender: FDA-Public Use
  Company Number: ADR-2013-00552

PATIENT
  Age: 58 Year
  Sex: Female

DRUGS (4)
  1. BACLOFEN INTRATHECAL [Suspect]
     Indication: POST LAMINECTOMY SYNDROME
  2. BACLOFEN INTRATHECAL [Suspect]
     Indication: PAIN
  3. FENTANYL [Concomitant]
  4. CLONIDINE (INTRATHECAL) [Concomitant]

REACTIONS (2)
  - Drug withdrawal syndrome [None]
  - Pain [None]
